FAERS Safety Report 17075301 (Version 1)
Quarter: 2019Q4

REPORT INFORMATION
  Report Type: Spontaneous
  Country: US (occurrence: US)
  Receive Date: 20191126
  Receipt Date: 20191126
  Transmission Date: 20200122
  Serious: Yes (Other)
  Sender: FDA-Public Use
  Company Number: US-LUNDBECK-DKLU3007974

PATIENT
  Sex: Female

DRUGS (2)
  1. EPIDIOLEX [Interacting]
     Active Substance: CANNABIDIOL
     Indication: PRODUCT USED FOR UNKNOWN INDICATION
     Route: 065
  2. ONFI [Suspect]
     Active Substance: CLOBAZAM
     Indication: PRODUCT USED FOR UNKNOWN INDICATION
     Dosage: OVERDOSE (60 MG DAILY DOSE)
     Route: 065

REACTIONS (6)
  - Seizure [Unknown]
  - Overdose [Unknown]
  - Behaviour disorder [Unknown]
  - Anticonvulsant drug level increased [Unknown]
  - Drug interaction [Unknown]
  - Drug ineffective [Unknown]
